FAERS Safety Report 10765711 (Version 1)
Quarter: 2015Q1

REPORT INFORMATION
  Report Type: Spontaneous
  Country: US (occurrence: None)
  Receive Date: 20150204
  Receipt Date: 20150204
  Transmission Date: 20150721
  Serious: Yes (Other)
  Sender: FDA-Public Use
  Company Number: None

PATIENT
  Age: 48 Year
  Sex: Female
  Weight: 75.75 kg

DRUGS (1)
  1. TRAZODONE [Suspect]
     Active Substance: TRAZODONE HYDROCHLORIDE
     Indication: DEPRESSION
     Dosage: 1 DAY ONCE DAILY TAKEN BY MOUTH
     Route: 048
     Dates: start: 20150123, end: 20150203

REACTIONS (2)
  - Confusional state [None]
  - Blister [None]

NARRATIVE: CASE EVENT DATE: 20150123
